FAERS Safety Report 18122760 (Version 2)
Quarter: 2020Q3

REPORT INFORMATION
  Report Type: Spontaneous
  Country: US (occurrence: US)
  Receive Date: 20200807
  Receipt Date: 20200811
  Transmission Date: 20201103
  Serious: No
  Sender: FDA-Public Use
  Company Number: US-GLAXOSMITHKLINE-US2020AMR153243

PATIENT
  Sex: Female

DRUGS (3)
  1. NUCALA [Suspect]
     Active Substance: MEPOLIZUMAB
     Indication: EOSINOPHILIC GRANULOMATOSIS WITH POLYANGIITIS
  2. NUCALA [Suspect]
     Active Substance: MEPOLIZUMAB
     Indication: EOSINOPHIL COUNT INCREASED
     Dosage: 100 MG, CYC
     Dates: start: 2018
  3. NUCALA [Suspect]
     Active Substance: MEPOLIZUMAB
     Indication: ASTHMA

REACTIONS (2)
  - Blood cholesterol increased [Unknown]
  - Cystitis [Not Recovered/Not Resolved]
